FAERS Safety Report 9723094 (Version 1)
Quarter: 2013Q4

REPORT INFORMATION
  Report Type: Spontaneous
  Country: US (occurrence: None)
  Receive Date: 20131126
  Receipt Date: 20131126
  Transmission Date: 20140711
  Serious: Yes (Life-Threatening, Hospitalization, Disabling, Other)
  Sender: FDA-Public Use
  Company Number: 2013P1021129

PATIENT
  Age: 67 Year
  Sex: Male
  Weight: 104.33 kg

DRUGS (15)
  1. ATIVAN [Suspect]
     Indication: ALCOHOL WITHDRAWAL SYNDROME
     Dates: start: 20130324
  2. XANAX [Concomitant]
  3. DIGOXIN [Concomitant]
  4. MELOXICAM [Concomitant]
  5. LISINOPRIL [Concomitant]
  6. XARELTO [Concomitant]
  7. VITAMIN B-12 [Concomitant]
  8. VITAMIN B-1 [Concomitant]
  9. ALLOPURINOL [Concomitant]
  10. CARVEDILOL [Concomitant]
  11. TAMSULOSIN [Concomitant]
  12. CITALOPRAM [Concomitant]
  13. FUROSEMIDE [Concomitant]
  14. FOLIC ACID [Concomitant]
  15. FAMOTIDINE [Concomitant]

REACTIONS (11)
  - Respiratory arrest [None]
  - Coma [None]
  - Corneal transplant [None]
  - Pain [None]
  - Balance disorder [None]
  - Gait disturbance [None]
  - Mental impairment [None]
  - Inappropriate schedule of drug administration [None]
  - Corneal disorder [None]
  - Weight decreased [None]
  - Activities of daily living impaired [None]
